FAERS Safety Report 18196796 (Version 1)
Quarter: 2020Q3

REPORT INFORMATION
  Report Type: Spontaneous
  Country: US (occurrence: US)
  Receive Date: 20200826
  Receipt Date: 20200826
  Transmission Date: 20201103
  Serious: No
  Sender: FDA-Public Use
  Company Number: NVSC2020US233390

PATIENT
  Sex: Female

DRUGS (3)
  1. VIVELLE?DOT [Suspect]
     Active Substance: ESTRADIOL
     Indication: UTERINE CANCER
  2. ESTRADIOL. [Suspect]
     Active Substance: ESTRADIOL
     Indication: PRODUCT USED FOR UNKNOWN INDICATION
     Route: 065
  3. VIVELLE?DOT [Suspect]
     Active Substance: ESTRADIOL
     Indication: OSTEOPOROSIS
     Route: 065

REACTIONS (2)
  - Balance disorder [Unknown]
  - Wrong technique in product usage process [Unknown]
